FAERS Safety Report 8877730 (Version 1)
Quarter: 2012Q4

REPORT INFORMATION
  Report Type: 
  Country: US (occurrence: US)
  Receive Date: 20121030
  Receipt Date: 20121030
  Transmission Date: 20130627
  Serious: Yes (Other)
  Sender: FDA-Public Use
  Company Number: US-ROCHE-1113596

PATIENT
  Sex: Male
  Weight: 53.12 kg

DRUGS (2)
  1. NUTROPIN [Suspect]
     Indication: HYPOTHALAMO-PITUITARY DISORDER
     Route: 065
  2. SYNTHROID [Concomitant]

REACTIONS (3)
  - Cerebellar infarction [Unknown]
  - Device malfunction [Unknown]
  - Sinus disorder [Unknown]
